FAERS Safety Report 18818483 (Version 1)
Quarter: 2021Q1

REPORT INFORMATION
  Report Type: Spontaneous
  Country: US (occurrence: US)
  Receive Date: 20210201
  Receipt Date: 20210201
  Transmission Date: 20210419
  Serious: No
  Sender: FDA-Public Use
  Company Number: US-TAKEDA-2021TUS005253

PATIENT
  Weight: 80.73 kg

DRUGS (22)
  1. LOSARTAN. [Concomitant]
     Active Substance: LOSARTAN
  2. MONTELUKAST [Concomitant]
     Active Substance: MONTELUKAST SODIUM
  3. FLOVENT [Concomitant]
     Active Substance: FLUTICASONE PROPIONATE
  4. OMEGA 3?6?9 [BORAGO OFFICINALIS OIL;FISH OIL;LINUM USITATISSIMUM OIL] [Concomitant]
  5. ACETAMINOPHEN. [Concomitant]
     Active Substance: ACETAMINOPHEN
  6. EPINEPHRINE. [Concomitant]
     Active Substance: EPINEPHRINE
  7. RANITIDINE. [Concomitant]
     Active Substance: RANITIDINE
  8. VITAMIN D3 [Concomitant]
     Active Substance: CHOLECALCIFEROL
  9. DIPHENHYDRAMINE. [Concomitant]
     Active Substance: DIPHENHYDRAMINE
  10. ADVAIR HFA [Concomitant]
     Active Substance: FLUTICASONE PROPIONATE\SALMETEROL XINAFOATE
  11. HYQVIA [Suspect]
     Active Substance: HUMAN IMMUNOGLOBULIN G\HYALURONIDASE RECOMBINANT HUMAN
     Indication: IMMUNODEFICIENCY COMMON VARIABLE
     Dosage: 30 GRAM, Q4WEEKS
     Route: 058
     Dates: start: 20180127
  12. NORMAL SALINE [Concomitant]
     Active Substance: SODIUM CHLORIDE
  13. NORVASC [Concomitant]
     Active Substance: AMLODIPINE BESYLATE
  14. NASONEX [Concomitant]
     Active Substance: MOMETASONE FUROATE
  15. ASPIRIN (E.C.) [Concomitant]
     Active Substance: ASPIRIN
  16. VITAMIN D2 [Concomitant]
     Active Substance: ERGOCALCIFEROL
  17. PANTOPRAZOLE [Concomitant]
     Active Substance: PANTOPRAZOLE
  18. HCTZ [Concomitant]
     Active Substance: HYDROCHLOROTHIAZIDE
  19. COVARYX [Concomitant]
     Active Substance: ESTROGENS, ESTERIFIED\METHYLTESTOSTERONE
  20. BENADRYL 24 D [Concomitant]
     Active Substance: LORATADINE\PSEUDOEPHEDRINE SULFATE
  21. MULTIVITAMIN + MINERAL [Concomitant]
     Active Substance: MINERALS\VITAMINS
  22. LEVOTHYROXINE. [Concomitant]
     Active Substance: LEVOTHYROXINE

REACTIONS (2)
  - Sinusitis [Unknown]
  - Bronchitis [Unknown]
